FAERS Safety Report 7489128-X (Version None)
Quarter: 2011Q2

REPORT INFORMATION
  Report Type: 
  Country: None (occurrence: None)
  Receive Date: 20110518
  Receipt Date: 20110504
  Transmission Date: 20111010
  Serious: Yes (Other)
  Sender: FDA-Public Use
  Company Number: CA-ELI_LILLY_AND_COMPANY-CA201105000957

PATIENT
  Sex: Male
  Weight: 80.726 kg

DRUGS (5)
  1. ZYPREXA [Suspect]
     Dosage: 15 MG, EACH EVENING
  2. LORAZEPAM [Concomitant]
  3. SEROQUEL [Concomitant]
  4. ZYPREXA ZYDIS [Suspect]
     Indication: SCHIZOPHRENIA
     Dosage: 15 MG, EACH EVENING
  5. ZYPREXA [Suspect]
     Dosage: 10 MG, EACH EVENING

REACTIONS (10)
  - HAEMATURIA [None]
  - SWELLING FACE [None]
  - TYPE 2 DIABETES MELLITUS [None]
  - PANCREATITIS [None]
  - HYPERTENSION [None]
  - MYOCARDIAL INFARCTION [None]
  - BLOOD CHOLESTEROL INCREASED [None]
  - HEPATIC STEATOSIS [None]
  - BLOOD TRIGLYCERIDES INCREASED [None]
  - WEIGHT INCREASED [None]
